FAERS Safety Report 7380424-3 (Version None)
Quarter: 2011Q1

REPORT INFORMATION
  Report Type: 
  Country: None (occurrence: None)
  Receive Date: 20110318
  Receipt Date: 20110309
  Transmission Date: 20110831
  Serious: Yes (Hospitalization)
  Sender: FDA-Public Use
  Company Number: GB-ACCORD-008403

PATIENT
  Age: 82 Year
  Sex: Male

DRUGS (4)
  1. GOSERELIN (GOSERELIN) [Concomitant]
  2. VITAMIN B COMPOUND (VITAMIN B COMPOUND) [Concomitant]
  3. THIAMINE (THIAMINE) [Concomitant]
  4. BICALUTAMIDE [Suspect]
     Indication: PROPHYLAXIS
     Dosage: 50.00MG-1.00 TIMES PER -1.0DAYS, ORAL
     Route: 048
     Dates: start: 20110217, end: 20110225

REACTIONS (4)
  - JAUNDICE CHOLESTATIC [None]
  - GAMMA-GLUTAMYLTRANSFERASE INCREASED [None]
  - BLOOD ALKALINE PHOSPHATASE INCREASED [None]
  - ASPARTATE AMINOTRANSFERASE INCREASED [None]
